FAERS Safety Report 7255829-1 (Version None)
Quarter: 2011Q1

REPORT INFORMATION
  Report Type: 
  Country: None (occurrence: None)
  Receive Date: 20110129
  Receipt Date: 20100615
  Transmission Date: 20110831
  Serious: No
  Sender: FDA-Public Use
  Company Number: US-ABBOTT-10P-163-0645991-00

PATIENT
  Age: 34 Year
  Sex: Female

DRUGS (5)
  1. IRON [Concomitant]
     Indication: PRODUCT USED FOR UNKNOWN INDICATION
  2. FLAGYL [Concomitant]
     Indication: PROPHYLAXIS
  3. URSODIOL [Concomitant]
     Indication: CHOLANGITIS SCLEROSING
     Dosage: 250MG X 2 TWICE DAILY
  4. MULTI-VITAMIN [Concomitant]
     Indication: PRODUCT USED FOR UNKNOWN INDICATION
  5. HUMIRA [Suspect]
     Indication: CROHN'S DISEASE
     Dates: start: 20100324

REACTIONS (1)
  - PARAESTHESIA [None]
